FAERS Safety Report 6120098-2 (Version None)
Quarter: 2009Q1

REPORT INFORMATION
  Report Type: 
  Country: None (occurrence: None)
  Receive Date: 20090311
  Receipt Date: 20090223
  Transmission Date: 20090719
  Serious: Yes (Hospitalization, Other)
  Sender: FDA-Public Use
  Company Number: 2009S1003410

PATIENT
  Age: 80 Year
  Sex: Male

DRUGS (7)
  1. ENALAPRIL MALEATE [Suspect]
     Indication: DRUG USE FOR UNKNOWN INDICATION
     Dosage: ORAL
     Route: 048
  2. ARTHROTEC [Suspect]
     Indication: DRUG USE FOR UNKNOWN INDICATION
     Dosage: ORAL, TABLET; ORAL
     Route: 048
  3. FORADIL [Concomitant]
  4. BUDESONIDE [Concomitant]
  5. RESPICUR (THEOPHYLLINE) [Concomitant]
  6. THROMBO (ACETYLSALICYLIC ACID) [Concomitant]
  7. ISOSORBIDE MONONITRATE [Concomitant]

REACTIONS (3)
  - FALL [None]
  - RENAL FAILURE [None]
  - RHABDOMYOLYSIS [None]
